FAERS Safety Report 7414952-9 (Version None)
Quarter: 2011Q2

REPORT INFORMATION
  Report Type: 
  Country: None (occurrence: None)
  Receive Date: 20110406
  Receipt Date: 20110318
  Transmission Date: 20111010
  Serious: Yes (Other)
  Sender: FDA-Public Use
  Company Number: 72432

PATIENT
  Age: 39 Year
  Sex: Female

DRUGS (5)
  1. ACCUPRIL [Concomitant]
  2. NOVOLIN 70/30 [Concomitant]
  3. MENTHOLATUM OINTMENT [Suspect]
     Indication: DRY SKIN
     Dosage: 1X TOPICAL APPLICATION
     Route: 061
     Dates: start: 20110301
  4. ASPIRIN [Concomitant]
  5. CLARITIN [Concomitant]

REACTIONS (6)
  - PAIN OF SKIN [None]
  - PRURITUS [None]
  - SKIN EXFOLIATION [None]
  - SKIN IRRITATION [None]
  - RASH [None]
  - SKIN HYPOPIGMENTATION [None]
